FAERS Safety Report 4333677-X (Version None)
Quarter: 2004Q2

REPORT INFORMATION
  Report Type: 
  Country: None (occurrence: None)
  Receive Date: 20040406
  Receipt Date: 20040406
  Transmission Date: 20050107
  Serious: Yes (Hospitalization)
  Sender: FDA-Public Use
  Company Number: None

PATIENT
  Sex: Female
  Weight: 51.2565 kg

DRUGS (4)
  1. TOPOTECAN 0.6 MG/M2 [Suspect]
     Indication: CERVIX CARCINOMA
     Dosage: 0.89 MG, DAY 1-5, IV
     Route: 042
     Dates: start: 20040301, end: 20040305
  2. TOPOTECAN 0.6 MG/M2 [Suspect]
     Indication: NEOPLASM RECURRENCE
     Dosage: 0.89 MG, DAY 1-5, IV
     Route: 042
     Dates: start: 20040301, end: 20040305
  3. CISPLATIN [Suspect]
     Indication: CERVIX CARCINOMA
     Dosage: 74 MG , ON DAY 5, IV
     Route: 042
     Dates: start: 20040305
  4. CISPLATIN [Suspect]
     Indication: NEOPLASM RECURRENCE
     Dosage: 74 MG , ON DAY 5, IV
     Route: 042
     Dates: start: 20040305

REACTIONS (3)
  - DIZZINESS [None]
  - FLANK PAIN [None]
  - HYPONATRAEMIA [None]
